FAERS Safety Report 16554551 (Version 2)
Quarter: 2019Q3

REPORT INFORMATION
  Report Type: Spontaneous
  Country: JP (occurrence: JP)
  Receive Date: 20190710
  Receipt Date: 20190801
  Transmission Date: 20191004
  Serious: Yes (Hospitalization, Other)
  Sender: FDA-Public Use
  Company Number: JP-OTSUKA-2019_025190

PATIENT
  Age: 38 Year
  Sex: Male

DRUGS (4)
  1. SAMSCA [Suspect]
     Active Substance: TOLVAPTAN
     Dosage: 15MG, FREQUENCY UNKNOWN
     Route: 065
     Dates: start: 201706
  2. SAMSCA [Suspect]
     Active Substance: TOLVAPTAN
     Dosage: 60MG, FREQUENCY UNKNOWN
     Route: 065
     Dates: start: 2015, end: 2016
  3. SAMSCA [Suspect]
     Active Substance: TOLVAPTAN
     Dosage: 11.5MG, FREQUENCY UNKNOWN
     Route: 065
     Dates: start: 2017
  4. SAMSCA [Suspect]
     Active Substance: TOLVAPTAN
     Indication: CONGENITAL CYSTIC KIDNEY DISEASE
     Dosage: 30MG/DAY, FREQUENCY UNKNOWN
     Route: 048
     Dates: start: 20170801

REACTIONS (2)
  - Therapy cessation [Unknown]
  - Chronic kidney disease [Recovered/Resolved]

NARRATIVE: CASE EVENT DATE: 20180729
